FAERS Safety Report 8641713 (Version 2)
Quarter: 2012Q4

REPORT INFORMATION
  Report Type: 
  Country: US (occurrence: US)
  Receive Date: 20120628
  Receipt Date: 20121214
  Transmission Date: 20130627
  Serious: No
  Sender: FDA-Public Use
  Company Number: US-ASTRAZENECA-2012SE41622

PATIENT
  Age: 46 Year
  Sex: Female

DRUGS (2)
  1. TOPROL XL [Suspect]
     Indication: BLOOD PRESSURE
     Route: 048
  2. TOPROL XL [Suspect]
     Indication: BLOOD PRESSURE
     Dosage: GENERIC
     Route: 048

REACTIONS (5)
  - Drug intolerance [Unknown]
  - Asthma [Unknown]
  - Chest discomfort [Unknown]
  - Palpitations [Unknown]
  - Chest discomfort [Unknown]
